FAERS Safety Report 18178795 (Version 2)
Quarter: 2021Q2

REPORT INFORMATION
  Report Type: Spontaneous
  Country: None (occurrence: US)
  Receive Date: 20200821
  Receipt Date: 20210517
  Transmission Date: 20210717
  Serious: Yes (Other)
  Sender: FDA-Public Use
  Company Number: US-GLAXOSMITHKLINE-US2020165972

PATIENT
  Sex: Male

DRUGS (3)
  1. RANITIDINE. [Suspect]
     Active Substance: RANITIDINE
     Dates: start: 19900115, end: 20000115
  2. ZANTAC [Suspect]
     Active Substance: RANITIDINE HYDROCHLORIDE
     Indication: GASTROOESOPHAGEAL REFLUX DISEASE
     Dosage: UNK UNK, QD
     Route: 065
     Dates: start: 199601, end: 200501
  3. ZANTAC [Suspect]
     Active Substance: RANITIDINE HYDROCHLORIDE
     Indication: GASTROOESOPHAGEAL REFLUX DISEASE
     Dosage: UNK UNK, QD
     Route: 065
     Dates: start: 199601, end: 200501

REACTIONS (1)
  - Bladder cancer [Unknown]
